FAERS Safety Report 8556603-6 (Version None)
Quarter: 2012Q3

REPORT INFORMATION
  Report Type: 
  Country: None (occurrence: None)
  Receive Date: 20120801
  Receipt Date: 20120720
  Transmission Date: 20120928
  Serious: Yes (Life-Threatening, Hospitalization)
  Sender: FDA-Public Use
  Company Number: CH-BRISTOL-MYERS SQUIBB COMPANY-16802985

PATIENT
  Age: 74 Year
  Sex: Male

DRUGS (13)
  1. PLAVIX [Interacting]
     Indication: CEREBRAL INFARCTION
     Route: 048
     Dates: start: 20110426, end: 20120511
  2. ATORVASTATIN CALCIUM [Concomitant]
     Route: 048
  3. GLUCOPHAGE [Suspect]
     Indication: TYPE 2 DIABETES MELLITUS
     Route: 048
     Dates: end: 20120501
  4. RAMIPRIL [Concomitant]
     Route: 048
     Dates: end: 20120501
  5. LANTUS [Concomitant]
     Route: 058
  6. HALDOL [Concomitant]
     Route: 048
  7. BISOPROLOL FUMARATE [Concomitant]
     Route: 048
     Dates: end: 20120501
  8. SEROQUEL [Concomitant]
  9. ASPIRIN [Interacting]
     Indication: CEREBRAL INFARCTION
     Dosage: INTERRUOTED:11MAY12 RESUMED:21MAY12
     Route: 048
     Dates: start: 20110416
  10. FLECTOR [Suspect]
     Route: 058
     Dates: end: 20120501
  11. ESCITALOPRAM [Interacting]
     Indication: BIPOLAR DISORDER
     Route: 048
     Dates: start: 20110401
  12. REMERON [Suspect]
     Indication: BIPOLAR DISORDER
     Route: 048
     Dates: start: 20120401
  13. TAMSULOSIN HCL [Concomitant]
     Route: 048

REACTIONS (5)
  - LOWER GASTROINTESTINAL HAEMORRHAGE [None]
  - MELAENA [None]
  - HAEMORRHAGIC ANAEMIA [None]
  - RENAL FAILURE ACUTE [None]
  - DRUG INTERACTION [None]
